FAERS Safety Report 21759203 (Version 7)
Quarter: 2023Q2

REPORT INFORMATION
  Report Type: Report from Study
  Country: JP (occurrence: JP)
  Receive Date: 20221221
  Receipt Date: 20230609
  Transmission Date: 20230722
  Serious: Yes (Death)
  Sender: FDA-Public Use
  Company Number: JP-ARGENX-2022-ARGX-JP002747

PATIENT
  Age: 70 Year
  Sex: Male
  Weight: 52 kg

DRUGS (7)
  1. VYVGART [Suspect]
     Active Substance: EFGARTIGIMOD ALFA-FCAB
     Indication: Myasthenia gravis
     Dosage: 530 MG
     Route: 041
     Dates: start: 20221216, end: 20221216
  2. NIFEDIPINE CR SANWA [Concomitant]
     Indication: Product used for unknown indication
     Dosage: 80 MG
     Route: 048
  3. OLMESARTAN [Concomitant]
     Active Substance: OLMESARTAN
     Indication: Product used for unknown indication
     Dosage: 40 MG
     Route: 048
  4. ATORVASTATIN [Concomitant]
     Active Substance: ATORVASTATIN
     Indication: Product used for unknown indication
     Dosage: 10 MG
     Route: 048
  5. VIBEGRON [Concomitant]
     Active Substance: VIBEGRON
     Indication: Product used for unknown indication
     Dosage: 50 MG, DAILY
     Route: 048
  6. EMPAGLIFLOZIN\LINAGLIPTIN [Concomitant]
     Active Substance: EMPAGLIFLOZIN\LINAGLIPTIN
     Indication: Product used for unknown indication
     Dosage: 1 DF, DAILY
     Route: 048
  7. AMPICILLIN SODIUM\SULBACTAM SODIUM [Concomitant]
     Active Substance: AMPICILLIN SODIUM\SULBACTAM SODIUM
     Indication: Pneumonia aspiration
     Dosage: 3 G, TID
     Route: 042
     Dates: start: 20221213, end: 20221216

REACTIONS (1)
  - Pneumonia aspiration [Fatal]

NARRATIVE: CASE EVENT DATE: 20221216
